FAERS Safety Report 15574129 (Version 2)
Quarter: 2019Q2

REPORT INFORMATION
  Report Type: Spontaneous
  Country: SA (occurrence: SA)
  Receive Date: 20181101
  Receipt Date: 20190408
  Transmission Date: 20190711
  Serious: Yes (Death, Hospitalization)
  Sender: FDA-Public Use
  Company Number: SA-ROCHE-2208558

PATIENT
  Age: 51 Year
  Sex: Female

DRUGS (2)
  1. CAPECITABINE. [Suspect]
     Active Substance: CAPECITABINE
     Indication: SQUAMOUS CELL BREAST CARCINOMA
     Dosage: CAPECITABINE 1250 MG/M2 BID SINGLE AGENT
     Route: 065
  2. CAPECITABINE. [Suspect]
     Active Substance: CAPECITABINE
     Indication: METASTASES TO CENTRAL NERVOUS SYSTEM

REACTIONS (1)
  - Pneumonitis [Unknown]
